FAERS Safety Report 8607991-3 (Version None)
Quarter: 2012Q3

REPORT INFORMATION
  Report Type: 
  Country: None (occurrence: None)
  Receive Date: 20120802
  Receipt Date: 20120614
  Transmission Date: 20120928
  Serious: Yes (Other)
  Sender: FDA-Public Use
  Company Number: SE-1192781

PATIENT
  Age: 85 Year
  Sex: Male

DRUGS (2)
  1. AZOPT [Suspect]
     Dosage: (OPHTHALMIC)
     Route: 047
  2. LATANOPROST [Concomitant]

REACTIONS (6)
  - GASTRIC DISORDER [None]
  - ASTHMA [None]
  - INSOMNIA [None]
  - AGEUSIA [None]
  - DEPRESSION [None]
  - VISION BLURRED [None]
